FAERS Safety Report 9338182 (Version 1)
Quarter: 2013Q2

REPORT INFORMATION
  Report Type: Spontaneous
  Country: US (occurrence: None)
  Receive Date: 20130605
  Receipt Date: 20130605
  Transmission Date: 20140414
  Serious: No
  Sender: FDA-Public Use
  Company Number: None

PATIENT
  Age: 12 Year
  Sex: Male

DRUGS (1)
  1. METHYLPHENIDATE ER [Suspect]
     Indication: ATTENTION DEFICIT/HYPERACTIVITY DISORDER
     Dosage: 36MG, 2QAM, BY MOUTH
     Route: 048
     Dates: start: 20111209, end: 20120906

REACTIONS (3)
  - Drug ineffective [None]
  - Psychomotor hyperactivity [None]
  - Irritability [None]
